FAERS Safety Report 6603460-0 (Version None)
Quarter: 2010Q1

REPORT INFORMATION
  Report Type: 
  Country: None (occurrence: None)
  Receive Date: 20100226
  Receipt Date: 20090618
  Transmission Date: 20100710
  Serious: No
  Sender: FDA-Public Use
  Company Number: A0792270A

PATIENT
  Age: 30 Year
  Sex: Female

DRUGS (2)
  1. VALTREX [Suspect]
     Indication: GENITAL HERPES
     Dosage: 500G PER DAY
     Route: 048
     Dates: start: 20080901
  2. ETHINYL ESTRADIOL + NORGESTREL [Concomitant]

REACTIONS (4)
  - EYE SWELLING [None]
  - FEELING ABNORMAL [None]
  - GENITAL HERPES [None]
  - SKIN LACERATION [None]
